FAERS Safety Report 7526058-9 (Version None)
Quarter: 2011Q2

REPORT INFORMATION
  Report Type: 
  Country: None (occurrence: None)
  Receive Date: 20110606
  Receipt Date: 20110524
  Transmission Date: 20111010
  Serious: Yes (Hospitalization, Other)
  Sender: FDA-Public Use
  Company Number: US-CELGENEUS-163-21660-11053188

PATIENT
  Sex: Male

DRUGS (3)
  1. RITUXIMAB [Concomitant]
     Route: 065
  2. ABRAXANE [Suspect]
     Indication: SMALL CELL CARCINOMA
     Route: 050
     Dates: start: 20110101, end: 20110401
  3. TAXOL [Concomitant]
     Route: 065

REACTIONS (5)
  - PERONEAL NERVE PALSY [None]
  - INTRAVASCULAR HAEMOLYSIS [None]
  - RENAL FAILURE [None]
  - HAEMATURIA [None]
  - NEUROPATHY PERIPHERAL [None]
